FAERS Safety Report 15088248 (Version 1)
Quarter: 2018Q2

REPORT INFORMATION
  Report Type: Spontaneous
  Country: IT (occurrence: IT)
  Receive Date: 20180629
  Receipt Date: 20180629
  Transmission Date: 20180711
  Serious: Yes (Hospitalization)
  Sender: FDA-Public Use
  Company Number: IT-KADMON PHARMACEUTICALS, LLC-KAD-201806-01325

PATIENT
  Age: 57 Year
  Sex: Male
  Weight: 90 kg

DRUGS (4)
  1. HARVONI [Suspect]
     Active Substance: LEDIPASVIR\SOFOSBUVIR
     Indication: HEPATITIS C
     Dosage: 90 MG/400 MG
     Route: 048
     Dates: start: 20170305, end: 20170524
  2. RIBAVIRIN. [Suspect]
     Active Substance: RIBAVIRIN
     Indication: HEPATITIS C
     Dosage: 1200 MG
     Route: 048
     Dates: start: 20170305, end: 20170521
  3. MYCOPHENOLATE MOFETIL. [Concomitant]
     Active Substance: MYCOPHENOLATE MOFETIL
     Indication: IMMUNOSUPPRESSION
     Route: 048
  4. CICLOSPORIN [Concomitant]
     Active Substance: CYCLOSPORINE
     Indication: IMMUNOSUPPRESSION
     Route: 048

REACTIONS (2)
  - Myocardial infarction [Unknown]
  - Anaemia [Unknown]

NARRATIVE: CASE EVENT DATE: 20170524
